FAERS Safety Report 6620227-8 (Version None)
Quarter: 2010Q1

REPORT INFORMATION
  Report Type: 
  Country: None (occurrence: None)
  Receive Date: 20100223
  Receipt Date: 20091215
  Transmission Date: 20100710
  Serious: No
  Sender: FDA-Public Use
  Company Number: 003458

PATIENT
  Sex: Female

DRUGS (1)
  1. CIMZIA [Suspect]
     Indication: CROHN'S DISEASE
     Dosage: 400 MG MONTHLY SUBCUTANEOUS
     Route: 058
     Dates: start: 20090508, end: 20090101

REACTIONS (4)
  - ARTHRALGIA [None]
  - BURNING SENSATION [None]
  - HYPERSENSITIVITY [None]
  - URTICARIA [None]
